FAERS Safety Report 8377914-3 (Version None)
Quarter: 2012Q2

REPORT INFORMATION
  Report Type: 
  Country: None (occurrence: None)
  Receive Date: 20120522
  Receipt Date: 20120508
  Transmission Date: 20120825
  Serious: Yes (Other)
  Sender: FDA-Public Use
  Company Number: US-ELI_LILLY_AND_COMPANY-US201205003684

PATIENT
  Age: 59 Year
  Sex: Female

DRUGS (10)
  1. ASPIRIN [Concomitant]
  2. ZETIA [Concomitant]
  3. METOPROLOL [Concomitant]
  4. NORVASC [Concomitant]
  5. CYMBALTA [Suspect]
     Indication: DEPRESSION
     Dosage: 30 MG, QD
     Dates: start: 20060101
  6. DILANTIN [Concomitant]
  7. B6 [Concomitant]
  8. VITAMIN B-12 [Concomitant]
  9. COUMADIN [Concomitant]
  10. LIPITOR [Concomitant]

REACTIONS (5)
  - STENT PLACEMENT [None]
  - EAR PAIN [None]
  - DYSPNOEA [None]
  - NEURALGIA [None]
  - DEVICE OCCLUSION [None]
